FAERS Safety Report 18620589 (Version 11)
Quarter: 2022Q1

REPORT INFORMATION
  Report Type: Report from Study
  Country: CA (occurrence: CA)
  Receive Date: 20201215
  Receipt Date: 20220109
  Transmission Date: 20220423
  Serious: Yes (Hospitalization, Other)
  Sender: FDA-Public Use
  Company Number: CA-TAKEDA-CA202030961

PATIENT
  Sex: Male

DRUGS (7)
  1. HUMAN C1-ESTERASE INHIBITOR [Suspect]
     Active Substance: HUMAN C1-ESTERASE INHIBITOR
     Indication: Hereditary angioedema
     Dosage: 1000 MILLIGRAM, 1X/WEEK
     Route: 065
     Dates: start: 20181211
  2. HUMAN C1-ESTERASE INHIBITOR [Suspect]
     Active Substance: HUMAN C1-ESTERASE INHIBITOR
     Indication: Hereditary angioedema
     Dosage: 1000 MILLIGRAM, 1X/WEEK
     Route: 065
     Dates: start: 20181211
  3. HUMAN C1-ESTERASE INHIBITOR [Suspect]
     Active Substance: HUMAN C1-ESTERASE INHIBITOR
     Indication: Hereditary angioedema
     Dosage: 1000 MILLIGRAM, 1X/WEEK
     Route: 065
     Dates: start: 20181211
  4. HUMAN C1-ESTERASE INHIBITOR [Suspect]
     Active Substance: HUMAN C1-ESTERASE INHIBITOR
     Dosage: 1000 MILLIGRAM, 1X/WEEK
     Route: 065
     Dates: start: 20181211
  5. HUMAN C1-ESTERASE INHIBITOR [Suspect]
     Active Substance: HUMAN C1-ESTERASE INHIBITOR
     Dosage: 1000 MILLIGRAM, 1X/WEEK
     Route: 065
     Dates: start: 20181211
  6. HUMAN C1-ESTERASE INHIBITOR [Suspect]
     Active Substance: HUMAN C1-ESTERASE INHIBITOR
     Dosage: 1000 MILLIGRAM, 1X/WEEK
     Route: 065
     Dates: start: 20181211
  7. AURO VALACYCLOVIR [Concomitant]
     Indication: Product used for unknown indication
     Dosage: 500MG 2 TABLETS, 3 TIMES A DAY FOR 7 DAYS
     Route: 065

REACTIONS (12)
  - Aneurysm [Not Recovered/Not Resolved]
  - Vascular graft [Recovered/Resolved]
  - Cardiac operation [Unknown]
  - Cholecystitis acute [Recovered/Resolved]
  - Haemorrhage [Not Recovered/Not Resolved]
  - Herpes zoster [Recovered/Resolved]
  - Chest pain [Recovered/Resolved]
  - Blood pressure increased [Unknown]
  - Infusion related reaction [Unknown]
  - Asthenia [Not Recovered/Not Resolved]
  - Vomiting [Recovering/Resolving]
  - Inappropriate schedule of product administration [Unknown]

NARRATIVE: CASE EVENT DATE: 20200101
